FAERS Safety Report 9993550 (Version 10)
Quarter: 2015Q2

REPORT INFORMATION
  Report Type: Spontaneous
  Country: US (occurrence: US)
  Receive Date: 20140310
  Receipt Date: 20150421
  Transmission Date: 20150821
  Serious: Yes (Hospitalization, Other)
  Sender: FDA-Public Use
  Company Number: US-009507513-1403USA000686

PATIENT
  Sex: Male

DRUGS (6)
  1. FOSAMAX [Suspect]
     Active Substance: ALENDRONATE SODIUM
     Indication: OSTEOPOROSIS
     Dosage: 10 MG, QD
     Route: 048
     Dates: start: 20000629, end: 20021022
  2. FORTEO [Suspect]
     Active Substance: TERIPARATIDE
     Dosage: UNK
  3. FOSAMAX [Suspect]
     Active Substance: ALENDRONATE SODIUM
     Indication: OSTEOPOROSIS
     Dosage: 70 MG, QW
     Route: 048
     Dates: start: 20030114, end: 20050607
  4. CORTICOSTEROIDS (UNSPECIFIED) [Concomitant]
     Active Substance: UNSPECIFIED INGREDIENT
     Indication: HYPERSENSITIVITY
     Dosage: UNK
     Dates: start: 1980
  5. PREDNISONE. [Concomitant]
     Active Substance: PREDNISONE
     Indication: NASAL POLYPS
     Dosage: 5 MG, BID
     Route: 048
     Dates: start: 1981
  6. VITAMINS (UNSPECIFIED) [Concomitant]
     Active Substance: VITAMINS
     Dosage: 1 DF, QD
     Dates: start: 1995

REACTIONS (45)
  - Cholecystectomy [Unknown]
  - Hypercholesterolaemia [Unknown]
  - Tumour excision [Unknown]
  - Compression fracture [Unknown]
  - Sleep apnoea syndrome [Unknown]
  - Lumbar spinal stenosis [Unknown]
  - Lumbar radiculopathy [Unknown]
  - Anxiety [Unknown]
  - Joint swelling [Unknown]
  - Femur fracture [Recovered/Resolved]
  - Ear neoplasm [Unknown]
  - Calcium deficiency [Unknown]
  - Coronary artery disease [Unknown]
  - Abdominal hernia [Unknown]
  - Dizziness [Unknown]
  - Intramedullary rod insertion [Unknown]
  - Radiotherapy [Unknown]
  - Cough [Not Recovered/Not Resolved]
  - Foot fracture [Recovering/Resolving]
  - Skeletal injury [Unknown]
  - Pulmonary mass [Unknown]
  - Gastrooesophageal reflux disease [Unknown]
  - Arthralgia [Unknown]
  - Foot fracture [Unknown]
  - Rheumatoid arthritis [Unknown]
  - Asthma [Unknown]
  - Sinusitis [Unknown]
  - Increased tendency to bruise [Unknown]
  - Coronary arterial stent insertion [Unknown]
  - Myocardial infarction [Unknown]
  - Hypertension [Unknown]
  - Kidney small [Unknown]
  - Hernia repair [Unknown]
  - Presyncope [Unknown]
  - Femur fracture [Recovered/Resolved]
  - Intramedullary rod insertion [Unknown]
  - Cancer surgery [Unknown]
  - Tendonitis [Unknown]
  - Chest pain [Unknown]
  - Prostate cancer [Unknown]
  - Lower limb fracture [Unknown]
  - Stress fracture [Unknown]
  - Back pain [Not Recovered/Not Resolved]
  - Fracture [Unknown]
  - Meniscus injury [Unknown]

NARRATIVE: CASE EVENT DATE: 2001
